FAERS Safety Report 13460831 (Version 1)
Quarter: 2017Q2

REPORT INFORMATION
  Report Type: Report from Study
  Country: US (occurrence: US)
  Receive Date: 20170420
  Receipt Date: 20170420
  Transmission Date: 20170830
  Serious: Yes (Hospitalization, Other)
  Sender: FDA-Public Use
  Company Number: US-AMGEN-USASL2017025290

PATIENT
  Age: 55 Year
  Sex: Female

DRUGS (3)
  1. REPATHA [Suspect]
     Active Substance: EVOLOCUMAB
     Indication: BLOOD CHOLESTEROL INCREASED
  2. REPATHA [Suspect]
     Active Substance: EVOLOCUMAB
     Indication: LOW DENSITY LIPOPROTEIN INCREASED
  3. REPATHA [Suspect]
     Active Substance: EVOLOCUMAB
     Indication: HYPERCHOLESTEROLAEMIA
     Dosage: 140 MG, Q2WK
     Route: 058
     Dates: start: 201604

REACTIONS (14)
  - Renal disorder [Unknown]
  - Mineral supplementation [Unknown]
  - Hospitalisation [Unknown]
  - Implant site scar [Unknown]
  - Psoriatic arthropathy [Unknown]
  - Injection site bruising [Unknown]
  - Anaemia [Unknown]
  - Gait disturbance [Unknown]
  - Pain in extremity [Unknown]
  - Ill-defined disorder [Unknown]
  - Respiratory disorder [Unknown]
  - Cellulitis [Unknown]
  - Knee arthroplasty [Recovering/Resolving]
  - Arthralgia [Unknown]

NARRATIVE: CASE EVENT DATE: 2016
